FAERS Safety Report 9329729 (Version 1)
Quarter: 2013Q2

REPORT INFORMATION
  Report Type: Spontaneous
  Country: US (occurrence: US)
  Receive Date: 20130604
  Receipt Date: 20130604
  Transmission Date: 20140414
  Serious: No
  Sender: FDA-Public Use
  Company Number: US-SANOFI-AVENTIS-2013SA035086

PATIENT
  Age: 84 Year
  Sex: Female

DRUGS (2)
  1. LANTUS [Suspect]
     Indication: TYPE 2 DIABETES MELLITUS
     Dosage: BEFORE BED DOSE:46 UNIT(S)
     Route: 051
  2. HUMALOG [Concomitant]
     Indication: TYPE 2 DIABETES MELLITUS
     Dosage: DURING THE DAY, EA MEA SLIDING SCALE DOSE:12 UNIT(S)

REACTIONS (5)
  - Fatigue [Unknown]
  - Hunger [Unknown]
  - Weight increased [Unknown]
  - Rash pruritic [Unknown]
  - Blood glucose abnormal [Unknown]
